FAERS Safety Report 14148200 (Version 3)
Quarter: 2018Q2

REPORT INFORMATION
  Report Type: Spontaneous
  Country: SE (occurrence: SE)
  Receive Date: 20171101
  Receipt Date: 20180427
  Transmission Date: 20180711
  Serious: Yes (Other)
  Sender: FDA-Public Use
  Company Number: SE-BIOVITRUM-2017SE1009

PATIENT
  Age: 4 Year
  Sex: Male

DRUGS (4)
  1. KINERET [Suspect]
     Active Substance: ANAKINRA
     Indication: STILL^S DISEASE
     Dates: start: 20110425, end: 20110711
  2. PREDNISOLONE. [Concomitant]
     Active Substance: PREDNISOLONE
  3. KINERET [Suspect]
     Active Substance: ANAKINRA
     Indication: HISTIOCYTOSIS HAEMATOPHAGIC
  4. SANDIMMUN [Concomitant]
     Active Substance: CYCLOSPORINE
     Dates: start: 20110509

REACTIONS (3)
  - Lung disorder [Recovered/Resolved]
  - Sepsis [Recovered/Resolved]
  - Histiocytosis haematophagic [Recovered/Resolved]

NARRATIVE: CASE EVENT DATE: 201107
